FAERS Safety Report 8843567 (Version 3)
Quarter: 2013Q1

REPORT INFORMATION
  Report Type: Report from Study
  Country: US (occurrence: US)
  Receive Date: 20121016
  Receipt Date: 20130117
  Transmission Date: 20140127
  Serious: No
  Sender: FDA-Public Use
  Company Number: US-VERTEX PHARMACEUTICAL INC.-2012-022176

PATIENT
  Sex: Male
  Weight: 100 kg

DRUGS (5)
  1. VX-950 (TELAPREVIR) [Suspect]
     Indication: HEPATITIS C
     Dosage: 750 MG, QD
     Route: 048
     Dates: start: 201209, end: 201211
  2. PEGASYS [Suspect]
     Indication: HEPATITIS C
     Dosage: 180 ?G, QW
     Route: 058
     Dates: start: 201209
  3. RIBAPAK [Suspect]
     Indication: HEPATITIS C
     Dosage: 400 MG IN AM, 800 MG IN PM
     Route: 048
     Dates: start: 201209
  4. ZOLOFT [Concomitant]
     Dosage: 50 MG, QD
     Route: 048
  5. PROMETHAZINE                       /00033002/ [Concomitant]
     Dosage: 25 MG, PRN
     Route: 048

REACTIONS (3)
  - Tremor [Not Recovered/Not Resolved]
  - Decreased appetite [Unknown]
  - Nausea [Unknown]
